FAERS Safety Report 14024067 (Version 1)
Quarter: 2017Q3

REPORT INFORMATION
  Report Type: Spontaneous
  Country: US (occurrence: US)
  Receive Date: 20170928
  Receipt Date: 20170928
  Transmission Date: 20171128
  Serious: No
  Sender: FDA-Public Use
  Company Number: US-SA-2016SA171810

PATIENT
  Age: 68 Year
  Sex: Female

DRUGS (12)
  1. DIAZEPAM. [Concomitant]
     Active Substance: DIAZEPAM
  2. METHYLPRED [Concomitant]
     Active Substance: METHYLPREDNISOLONE
  3. OXYCODONE [Concomitant]
     Active Substance: OXYCODONE
  4. APAP [Concomitant]
     Active Substance: ACETAMINOPHEN
  5. CALCIUM D3 [Concomitant]
     Active Substance: CALCIUM\CHOLECALCIFEROL
  6. BACLOFEN. [Concomitant]
     Active Substance: BACLOFEN
  7. TOPIRAMATE. [Concomitant]
     Active Substance: TOPIRAMATE
  8. MELOXICAM. [Concomitant]
     Active Substance: MELOXICAM
  9. TOLTERODINE [Concomitant]
     Active Substance: TOLTERODINE
  10. AUBAGIO [Suspect]
     Active Substance: TERIFLUNOMIDE
     Indication: MULTIPLE SCLEROSIS
     Route: 048
  11. BENAZEPRIL [Concomitant]
     Active Substance: BENAZEPRIL HYDROCHLORIDE
  12. SERTRALINE [Concomitant]
     Active Substance: SERTRALINE HYDROCHLORIDE

REACTIONS (1)
  - Headache [Not Recovered/Not Resolved]
